FAERS Safety Report 7699097-5 (Version None)
Quarter: 2011Q3

REPORT INFORMATION
  Report Type: 
  Country: None (occurrence: None)
  Receive Date: 20110819
  Receipt Date: 20110811
  Transmission Date: 20111222
  Serious: Yes (Congenital Anomaly)
  Sender: FDA-Public Use
  Company Number: BR-B.I. PHARMACEUTICALS,INC./RIDGEFIELD-2011-BP-05445BP

PATIENT

DRUGS (3)
  1. VIRAMUNE [Suspect]
     Indication: MATERNAL EXPOSURE DURING PREGNANCY
     Route: 064
  2. ZERIT [Concomitant]
     Indication: MATERNAL EXPOSURE DURING PREGNANCY
     Route: 064
  3. EPIVIR [Concomitant]
     Indication: MATERNAL EXPOSURE DURING PREGNANCY
     Route: 064

REACTIONS (3)
  - MITRAL VALVE STENOSIS [None]
  - PULMONARY VALVE STENOSIS [None]
  - ATRIAL SEPTAL DEFECT [None]
